FAERS Safety Report 24815544 (Version 1)
Quarter: 2025Q1

REPORT INFORMATION
  Report Type: Spontaneous
  Country: PL (occurrence: PL)
  Receive Date: 20250107
  Receipt Date: 20250107
  Transmission Date: 20250408
  Serious: Yes (Other)
  Sender: SANOFI AVENTIS
  Company Number: None

PATIENT
  Age: 65 Year
  Sex: Male

DRUGS (12)
  1. RAMIPRIL [Suspect]
     Active Substance: RAMIPRIL
     Indication: Hypertensive heart disease
     Dosage: 1 DF, Q12H
     Route: 048
     Dates: start: 20210807, end: 20210810
  2. RAMIPRIL [Suspect]
     Active Substance: RAMIPRIL
     Indication: Atrial fibrillation
  3. RAMIPRIL [Suspect]
     Active Substance: RAMIPRIL
     Indication: Type V hyperlipidaemia
  4. ENOXAPARIN SODIUM [Suspect]
     Active Substance: ENOXAPARIN SODIUM
     Indication: Hypertensive heart disease
     Dosage: 1 DF, QD
     Route: 058
     Dates: start: 20210807, end: 20210810
  5. ENOXAPARIN SODIUM [Suspect]
     Active Substance: ENOXAPARIN SODIUM
     Indication: Atrial fibrillation
  6. ENOXAPARIN SODIUM [Suspect]
     Active Substance: ENOXAPARIN SODIUM
     Indication: Type V hyperlipidaemia
  7. METOPROLOL TARTRATE [Suspect]
     Active Substance: METOPROLOL TARTRATE
     Indication: Hypertensive heart disease
     Dosage: 1 DF, QD
     Route: 048
     Dates: start: 20210807, end: 20210810
  8. METOPROLOL TARTRATE [Suspect]
     Active Substance: METOPROLOL TARTRATE
     Indication: Atrial fibrillation
  9. METOPROLOL TARTRATE [Suspect]
     Active Substance: METOPROLOL TARTRATE
     Indication: Type V hyperlipidaemia
  10. WARFARIN [Suspect]
     Active Substance: WARFARIN
     Indication: Hypertensive heart disease
     Dosage: 2 DF, QD
     Route: 048
     Dates: start: 20210807, end: 20210810
  11. WARFARIN [Suspect]
     Active Substance: WARFARIN
     Indication: Atrial fibrillation
  12. WARFARIN [Suspect]
     Active Substance: WARFARIN
     Indication: Type V hyperlipidaemia

REACTIONS (4)
  - Coagulopathy [Unknown]
  - International normalised ratio increased [Unknown]
  - Prothrombin time ratio decreased [Unknown]
  - Prothrombin time prolonged [Unknown]

NARRATIVE: CASE EVENT DATE: 20210809
